FAERS Safety Report 10057299 (Version 3)
Quarter: 2014Q3

REPORT INFORMATION
  Report Type: Report from Study
  Country: US (occurrence: US)
  Receive Date: 20140403
  Receipt Date: 20140825
  Transmission Date: 20150326
  Serious: Yes (Death, Hospitalization)
  Sender: FDA-Public Use
  Company Number: US-SANOFI-AVENTIS-LEUK-1000359

PATIENT
  Age: 81 Year
  Sex: Male
  Weight: 83.6 kg

DRUGS (19)
  1. SARGRAMOSTIM [Suspect]
     Active Substance: SARGRAMOSTIM
     Indication: METASTATIC MALIGNANT MELANOMA
     Dosage: 250 MCG, QD (COURSE 39)
     Route: 058
     Dates: start: 20130814, end: 20130827
  2. QUETIAPINE [Concomitant]
     Active Substance: QUETIAPINE
     Dosage: 25 MG, QD PRN
     Route: 048
     Dates: start: 20121114, end: 20130731
  3. IPILIMUMAB [Suspect]
     Active Substance: IPILIMUMAB
     Indication: METASTATIC MALIGNANT MELANOMA
     Route: 042
     Dates: start: 20110608
  4. SODIUM [Concomitant]
     Active Substance: SODIUM
     Dosage: 1 G, TID
     Route: 048
     Dates: start: 20130206
  5. SENNA [Concomitant]
     Active Substance: SENNA LEAF\SENNOSIDES\SENNOSIDES A AND B
     Indication: CONSTIPATION
     Dosage: 17.2 MG, BID PRN
     Route: 048
     Dates: start: 20110527, end: 20130531
  6. PROTONIX [Concomitant]
     Active Substance: PANTOPRAZOLE SODIUM
     Dosage: UNK
     Route: 041
  7. SARGRAMOSTIM [Suspect]
     Active Substance: SARGRAMOSTIM
     Indication: METASTATIC MALIGNANT MELANOMA
     Dosage: 250 MCG, QD (COURSE 38)
     Route: 058
     Dates: start: 20130723
  8. SARGRAMOSTIM [Suspect]
     Active Substance: SARGRAMOSTIM
     Indication: METASTATIC MALIGNANT MELANOMA
     Route: 058
     Dates: start: 20110608
  9. LOVENOX [Concomitant]
     Active Substance: ENOXAPARIN SODIUM
     Indication: DEEP VEIN THROMBOSIS
     Dosage: UNK
     Dates: start: 2011
  10. IPILIMUMAB [Suspect]
     Active Substance: IPILIMUMAB
     Indication: METASTATIC MALIGNANT MELANOMA
     Dosage: 10 MG/KG, QD (OVER 90 MINS ON DAY OF MAINTENANCE THERAPY, COURSE 36
     Route: 042
     Dates: start: 20130611, end: 20130611
  11. PRADAXA [Concomitant]
     Active Substance: DABIGATRAN ETEXILATE MESYLATE
     Indication: DEEP VEIN THROMBOSIS
     Dosage: UNK
     Dates: start: 2013
  12. OMEPRAZOLE. [Concomitant]
     Active Substance: OMEPRAZOLE
     Dosage: 40 MG, QD
     Route: 048
     Dates: start: 20110629
  13. SARGRAMOSTIM [Suspect]
     Active Substance: SARGRAMOSTIM
     Indication: METASTATIC MALIGNANT MELANOMA
     Dosage: TOTAL DOSE DURING THIS COURSE: 3500 MCG?COURSE: 31
     Route: 058
     Dates: start: 20130227, end: 20130312
  14. LOVENOX [Concomitant]
     Active Substance: ENOXAPARIN SODIUM
     Indication: PULMONARY EMBOLISM
     Dosage: UNK
     Dates: start: 2011
  15. PRADAXA [Concomitant]
     Active Substance: DABIGATRAN ETEXILATE MESYLATE
     Indication: PULMONARY EMBOLISM
     Dosage: UNK
     Dates: start: 2013
  16. OXYCODONE [Concomitant]
     Active Substance: OXYCODONE
     Indication: PAIN
     Dosage: 5 MG, 1-2 TAB, Q4HR PRN
     Route: 048
     Dates: start: 20110629
  17. POLYETHYLENE GLYCOL [Concomitant]
     Active Substance: POLYETHYLENE GLYCOLS
     Indication: CONSTIPATION
     Dosage: 17 G, QD, PRN
     Route: 048
     Dates: start: 20120801, end: 20130731
  18. SARGRAMOSTIM [Suspect]
     Active Substance: SARGRAMOSTIM
     Indication: METASTATIC MALIGNANT MELANOMA
     Dosage: 250 MCG, QD (ON DAY 1-14 OF MAINTENANCE THERAPY) COURSE 36
     Route: 058
     Dates: start: 20130611, end: 20130625
  19. SODIUM [Concomitant]
     Active Substance: SODIUM
     Dosage: UNK

REACTIONS (5)
  - Neoplasm progression [Fatal]
  - Adrenal insufficiency [Recovering/Resolving]
  - Upper gastrointestinal haemorrhage [Not Recovered/Not Resolved]
  - Small intestinal obstruction [Not Recovered/Not Resolved]
  - Anaemia [Not Recovered/Not Resolved]

NARRATIVE: CASE EVENT DATE: 20130319
